FAERS Safety Report 6610015-0 (Version None)
Quarter: 2010Q1

REPORT INFORMATION
  Report Type: 
  Country: None (occurrence: None)
  Receive Date: 20100216
  Receipt Date: 20090414
  Transmission Date: 20100710
  Serious: Yes (Other)
  Sender: FDA-Public Use
  Company Number: MC200900054

PATIENT
  Age: 76 Year
  Sex: Male
  Weight: 77.1 kg

DRUGS (7)
  1. ANGIOMAX [Suspect]
     Indication: PERCUTANEOUS CORONARY INTERVENTION
     Dosage: 11 ML, BOLUS, INTRAVENOUS, 26 ML, HR, INTRAVENOUS
     Route: 040
     Dates: start: 20090206, end: 20090206
  2. ANGIOMAX [Suspect]
     Indication: STENT PLACEMENT
     Dosage: 11 ML, BOLUS, INTRAVENOUS, 26 ML, HR, INTRAVENOUS
     Route: 040
     Dates: start: 20090206, end: 20090206
  3. ANGIOMAX [Suspect]
     Indication: PERCUTANEOUS CORONARY INTERVENTION
     Dosage: 11 ML, BOLUS, INTRAVENOUS, 26 ML, HR, INTRAVENOUS
     Route: 040
     Dates: start: 20090206, end: 20090206
  4. ANGIOMAX [Suspect]
     Indication: STENT PLACEMENT
     Dosage: 11 ML, BOLUS, INTRAVENOUS, 26 ML, HR, INTRAVENOUS
     Route: 040
     Dates: start: 20090206, end: 20090206
  5. FENTANYL-100 [Concomitant]
  6. VERSED [Concomitant]
  7. NITROGLYCERIN [Concomitant]

REACTIONS (4)
  - CHEST PAIN [None]
  - THROMBOSIS IN DEVICE [None]
  - UNDERDOSE [None]
  - WRONG TECHNIQUE IN DRUG USAGE PROCESS [None]
